FAERS Safety Report 25374768 (Version 1)
Quarter: 2025Q2

REPORT INFORMATION
  Report Type: Spontaneous
  Country: US (occurrence: US)
  Receive Date: 20250529
  Receipt Date: 20250529
  Transmission Date: 20250716
  Serious: Yes (Life-Threatening, Hospitalization, Disabling)
  Sender: DR REDDYS
  Company Number: None

PATIENT
  Age: 82 Year
  Sex: Male

DRUGS (3)
  1. LEVOFLOXACIN [Suspect]
     Active Substance: LEVOFLOXACIN
     Indication: Bursitis
  2. LEVOFLOXACIN [Suspect]
     Active Substance: LEVOFLOXACIN
     Indication: Escherichia urinary tract infection
  3. LEVOFLOXACIN [Suspect]
     Active Substance: LEVOFLOXACIN
     Indication: Klebsiella urinary tract infection

REACTIONS (3)
  - Myasthenia gravis [Recovering/Resolving]
  - Unmasking of previously unidentified disease [Recovering/Resolving]
  - Myasthenia gravis [Recovering/Resolving]
